FAERS Safety Report 6012281-1 (Version None)
Quarter: 2008Q4

REPORT INFORMATION
  Report Type: 
  Country: None (occurrence: None)
  Receive Date: 20081218
  Receipt Date: 20081023
  Transmission Date: 20090506
  Serious: No
  Sender: FDA-Public Use
  Company Number: US-ASTRAZENECA-2008UW23677

PATIENT
  Age: 47 Year
  Sex: Female
  Weight: 69.9 kg

DRUGS (6)
  1. SYMBICORT 80/4.5 MCG 120 INHALATIONS [Suspect]
     Indication: ASTHMA
     Route: 055
  2. SYMBICORT 80/4.5 MCG 120 INHALATIONS [Suspect]
     Indication: EMPHYSEMA
     Route: 055
  3. ALBUTEROL [Concomitant]
  4. CLONAZEPAM [Concomitant]
  5. PREVACID [Concomitant]
  6. RHINOCORT [Concomitant]

REACTIONS (7)
  - BLISTER [None]
  - CHEST DISCOMFORT [None]
  - EXTRASYSTOLES [None]
  - EYE PRURITUS [None]
  - FEELING JITTERY [None]
  - PRURITUS [None]
  - RESPIRATORY DISORDER [None]
